FAERS Safety Report 17734104 (Version 5)
Quarter: 2020Q4

REPORT INFORMATION
  Report Type: Spontaneous
  Country: US (occurrence: US)
  Receive Date: 20200501
  Receipt Date: 20201124
  Transmission Date: 20210113
  Serious: Yes (Other)
  Sender: FDA-Public Use
  Company Number: US-PFIZER INC-2020104624

PATIENT
  Age: 58 Year
  Sex: Female
  Weight: 88.45 kg

DRUGS (2)
  1. IBRANCE [Suspect]
     Active Substance: PALBOCICLIB
     Indication: BREAST CANCER FEMALE
     Dosage: 100 MG, UNK
  2. IBRANCE [Suspect]
     Active Substance: PALBOCICLIB
     Dosage: UNK

REACTIONS (8)
  - Headache [Unknown]
  - Depression [Unknown]
  - Second primary malignancy [Unknown]
  - Fatigue [Unknown]
  - Ear disorder [Unknown]
  - Hepatic cancer [Unknown]
  - Pain [Unknown]
  - Crying [Unknown]
